FAERS Safety Report 14807117 (Version 1)
Quarter: 2018Q2

REPORT INFORMATION
  Report Type: Spontaneous
  Country: US (occurrence: US)
  Receive Date: 20180425
  Receipt Date: 20180425
  Transmission Date: 20180711
  Serious: No
  Sender: FDA-Public Use
  Company Number: US-ROCHE-2083481

PATIENT
  Sex: Female
  Weight: 118.04 kg

DRUGS (1)
  1. OCREVUS [Suspect]
     Active Substance: OCRELIZUMAB
     Indication: MULTIPLE SCLEROSIS
     Dosage: ONGOING: YES
     Route: 065
     Dates: start: 20180221

REACTIONS (3)
  - Depression [Recovered/Resolved]
  - Mental impairment [Recovered/Resolved]
  - Feeling abnormal [Recovered/Resolved]
